FAERS Safety Report 15542628 (Version 1)
Quarter: 2018Q4

REPORT INFORMATION
  Report Type: Spontaneous
  Country: US (occurrence: US)
  Receive Date: 20181023
  Receipt Date: 20181023
  Transmission Date: 20190205
  Serious: No
  Sender: FDA-Public Use
  Company Number: US-ABBVIE-17K-163-2169522-00

PATIENT
  Sex: Female

DRUGS (1)
  1. LUPRON DEPOT [Suspect]
     Active Substance: LEUPROLIDE ACETATE
     Indication: PRODUCT USED FOR UNKNOWN INDICATION
     Route: 065

REACTIONS (13)
  - Discomfort [Unknown]
  - Ovulation pain [Not Recovered/Not Resolved]
  - Gastrointestinal disorder [Unknown]
  - Adnexa uteri pain [Unknown]
  - Abdominal pain [Unknown]
  - Adverse event [Unknown]
  - Menstruation irregular [Unknown]
  - Menstrual disorder [Unknown]
  - Pain [Unknown]
  - Metrorrhagia [Unknown]
  - Uterine leiomyoma [Unknown]
  - Abdominal discomfort [Unknown]
  - Endometriosis [Unknown]
